FAERS Safety Report 14559300 (Version 1)
Quarter: 2018Q1

REPORT INFORMATION
  Report Type: Report from Study
  Country: US (occurrence: US)
  Receive Date: 20180221
  Receipt Date: 20180221
  Transmission Date: 20180509
  Serious: Yes (Hospitalization, Disabling, Other)
  Sender: FDA-Public Use
  Company Number: US-REGENERON PHARMACEUTICALS, INC.-2018-14469

PATIENT

DRUGS (2)
  1. EYLEA [Suspect]
     Active Substance: AFLIBERCEPT
     Indication: DIABETIC RETINOPATHY
     Dosage: EVERY 3 TO 4 WEEKS IN THE LEFT EYE
  2. EYLEA [Suspect]
     Active Substance: AFLIBERCEPT
     Indication: MACULAR OEDEMA
     Dosage: UNK
     Dates: start: 201801, end: 201801

REACTIONS (4)
  - Myocardial infarction [Unknown]
  - Cerebrovascular accident [Unknown]
  - Blindness [Not Recovered/Not Resolved]
  - Retinal detachment [Unknown]

NARRATIVE: CASE EVENT DATE: 201706
